FAERS Safety Report 11668005 (Version 4)
Quarter: 2016Q2

REPORT INFORMATION
  Report Type: Report from Study
  Country: US (occurrence: US)
  Receive Date: 20151027
  Receipt Date: 20160527
  Transmission Date: 20160815
  Serious: Yes (Other)
  Sender: FDA-Public Use
  Company Number: US-MDT-ADR-2015-02032

PATIENT
  Age: 51 Year
  Sex: Female

DRUGS (6)
  1. MORPHINE [Suspect]
     Active Substance: MORPHINE
     Dosage: 0.4514 MG/DAY
     Route: 037
     Dates: start: 20150813
  2. COMPOUNDED BACLOFEN [Suspect]
     Active Substance: BACLOFEN
     Dosage: 55.64 MCG/DAY
     Route: 037
     Dates: end: 20150813
  3. MORPHINE [Suspect]
     Active Substance: MORPHINE
     Dosage: 0.3710 MG/DAY
     Route: 037
     Dates: end: 20150813
  4. BUPIVACAINE. [Suspect]
     Active Substance: BUPIVACAINE
     Dosage: 11.129 MG/DAY
     Route: 037
     Dates: end: 20150813
  5. COMPOUNDED BACLOFEN [Suspect]
     Active Substance: BACLOFEN
     Dosage: 67.71 MCG/DAY
     Route: 037
     Dates: start: 20150813
  6. BUPIVACAINE. [Suspect]
     Active Substance: BUPIVACAINE
     Dosage: 13.542MG/DAY
     Route: 037
     Dates: start: 20150813

REACTIONS (2)
  - Pain [Recovered/Resolved]
  - Hypoaesthesia [Recovered/Resolved]
